FAERS Safety Report 22345571 (Version 1)
Quarter: 2023Q2

REPORT INFORMATION
  Report Type: Report from Study
  Country: CA (occurrence: CA)
  Receive Date: 20230519
  Receipt Date: 20230519
  Transmission Date: 20230722
  Serious: Yes (Other)
  Sender: FDA-Public Use
  Company Number: CA-MYLANLABS-2023M1050758

PATIENT
  Sex: Female

DRUGS (1)
  1. HULIO [Suspect]
     Active Substance: ADALIMUMAB-FKJP
     Indication: Psoriatic arthropathy
     Dosage: 40 MILLIGRAM, QW (40 MG SC ONCE A WEEK)
     Route: 058
     Dates: start: 20221002

REACTIONS (2)
  - Vascular dementia [Unknown]
  - Off label use [Unknown]

NARRATIVE: CASE EVENT DATE: 20221002
